FAERS Safety Report 24812944 (Version 3)
Quarter: 2025Q1

REPORT INFORMATION
  Report Type: Report from Study
  Country: US (occurrence: US)
  Receive Date: 20250107
  Receipt Date: 20250306
  Transmission Date: 20250408
  Serious: No
  Sender: ACADIA PHARMACEUTICALS
  Company Number: US-ACADIA PHARMACEUTICALS INC.-ACA-2025-PIM-000087

PATIENT

DRUGS (29)
  1. NUPLAZID [Suspect]
     Active Substance: PIMAVANSERIN TARTRATE
     Indication: Parkinson^s disease psychosis
     Dosage: 34 MILLIGRAM, QD
     Route: 048
  2. NUPLAZID [Suspect]
     Active Substance: PIMAVANSERIN TARTRATE
     Indication: Parkinson^s disease psychosis
     Dosage: 10 MILLIGRAM, TID
     Route: 048
     Dates: start: 20241022
  3. NUPLAZID [Suspect]
     Active Substance: PIMAVANSERIN TARTRATE
     Dosage: 10 MILLIGRAM, BID
     Route: 065
  4. ALBUTEROL [Concomitant]
     Active Substance: ALBUTEROL
  5. AMLODIPINE [Concomitant]
     Active Substance: AMLODIPINE BESYLATE
  6. LIPITOR [Concomitant]
     Active Substance: ATORVASTATIN CALCIUM
  7. SYMBICORT [Concomitant]
     Active Substance: BUDESONIDE\FORMOTEROL FUMARATE DIHYDRATE
  8. BUSPAR [Concomitant]
     Active Substance: BUSPIRONE HYDROCHLORIDE
  9. COREG [Concomitant]
     Active Substance: CARVEDILOL
  10. CLONAZEPAM [Concomitant]
     Active Substance: CLONAZEPAM
  11. PLAVIX [Concomitant]
     Active Substance: CLOPIDOGREL BISULFATE
  12. ZETIA [Concomitant]
     Active Substance: EZETIMIBE
  13. FARXIGA [Concomitant]
     Active Substance: DAPAGLIFLOZIN PROPANEDIOL
  14. HYDRALAZINE [Concomitant]
     Active Substance: HYDRALAZINE HYDROCHLORIDE
  15. VIMPAT [Concomitant]
     Active Substance: LACOSAMIDE
  16. LITHIUM [Concomitant]
     Active Substance: LITHIUM
  17. LOSARTAN [Concomitant]
     Active Substance: LOSARTAN
  18. ZOFRAN [Concomitant]
     Active Substance: ONDANSETRON HYDROCHLORIDE
  19. PHENERGAN [Concomitant]
     Active Substance: PROMETHAZINE HYDROCHLORIDE
  20. RISPERDAL [Concomitant]
     Active Substance: RISPERIDONE
  21. PROTONIX [Concomitant]
     Active Substance: PANTOPRAZOLE SODIUM
  22. TRESIBA [Concomitant]
     Active Substance: INSULIN DEGLUDEC
  23. NOVOLOG [Concomitant]
     Active Substance: INSULIN ASPART
  24. ALLEGRA [Concomitant]
     Active Substance: FEXOFENADINE HYDROCHLORIDE
  25. BENADRYL [Concomitant]
     Active Substance: DIPHENHYDRAMINE HYDROCHLORIDE
  26. TYLENOL [Concomitant]
     Active Substance: ACETAMINOPHEN
  27. MELATONIN [Concomitant]
     Active Substance: MELATONIN
  28. MUPIROCIN [Concomitant]
     Active Substance: MUPIROCIN
  29. SCOPOLAMINE [Concomitant]
     Active Substance: SCOPOLAMINE

REACTIONS (3)
  - Balance disorder [Not Recovered/Not Resolved]
  - Overdose [Not Recovered/Not Resolved]
  - Fall [Not Recovered/Not Resolved]

NARRATIVE: CASE EVENT DATE: 20241201
